FAERS Safety Report 6875635-7 (Version None)
Quarter: 2010Q3

REPORT INFORMATION
  Report Type: 
  Country: None (occurrence: None)
  Receive Date: 20100727
  Receipt Date: 20070910
  Transmission Date: 20110219
  Serious: Yes (Death, Hospitalization, Other)
  Sender: FDA-Public Use
  Company Number: US-PFIZER INC-2006120453

PATIENT
  Sex: Female
  Weight: 45.4 kg

DRUGS (6)
  1. CELEBREX [Suspect]
     Indication: OSTEOARTHRITIS
     Route: 048
     Dates: start: 20010618, end: 20021121
  2. VIOXX [Suspect]
     Indication: OSTEOARTHRITIS
     Route: 048
     Dates: start: 20000915, end: 20021121
  3. NORVASC [Concomitant]
     Dates: start: 19990611, end: 20021121
  4. ULTRAM [Concomitant]
     Dates: start: 20010101, end: 20021121
  5. ACETYLSALICYLIC ACID SRT [Concomitant]
     Dates: start: 20020624, end: 20021101
  6. PLAVIX [Concomitant]
     Dates: start: 20020611, end: 20021121

REACTIONS (2)
  - CARDIAC FAILURE CONGESTIVE [None]
  - MYOCARDIAL INFARCTION [None]
